FAERS Safety Report 5317930-9 (Version None)
Quarter: 2007Q2

REPORT INFORMATION
  Report Type: 
  Country: None (occurrence: None)
  Receive Date: 20070507
  Receipt Date: 20070424
  Transmission Date: 20071010
  Serious: Yes (Hospitalization)
  Sender: FDA-Public Use
  Company Number: US-GILEAD-2007-0012007

PATIENT
  Sex: Male

DRUGS (1)
  1. HEPSERA [Suspect]

REACTIONS (1)
  - RHABDOMYOLYSIS [None]
